FAERS Safety Report 6330688-X (Version None)
Quarter: 2009Q3

REPORT INFORMATION
  Report Type: 
  Country: None (occurrence: None)
  Receive Date: 20090827
  Receipt Date: 20090825
  Transmission Date: 20100115
  Serious: Yes (Hospitalization)
  Sender: FDA-Public Use
  Company Number: US-BAYER-200919476NA

PATIENT
  Age: 66 Year
  Sex: Male
  Weight: 83 kg

DRUGS (6)
  1. LEVITRA [Suspect]
     Indication: PROSTATE CANCER
     Dosage: 1/2 TABLET
     Dates: start: 20090303, end: 20090427
  2. FLOVENT [Concomitant]
  3. NEXIUM [Concomitant]
  4. DUONEB [Concomitant]
  5. COMBIVENT [Concomitant]
  6. ANTIBIOTICS [Concomitant]

REACTIONS (6)
  - ARTHRALGIA [None]
  - BACK PAIN [None]
  - CHEST PAIN [None]
  - DYSPNOEA [None]
  - MUSCULOSKELETAL CHEST PAIN [None]
  - PAIN IN EXTREMITY [None]
